APPROVED DRUG PRODUCT: ISOPTO CARPINE
Active Ingredient: PILOCARPINE HYDROCHLORIDE
Strength: 1%
Dosage Form/Route: SOLUTION/DROPS;OPHTHALMIC
Application: N200890 | Product #001 | TE Code: AT
Applicant: SANDOZ INC
Approved: Jun 22, 2010 | RLD: Yes | RS: Yes | Type: RX